FAERS Safety Report 4682703-7 (Version None)
Quarter: 2005Q2

REPORT INFORMATION
  Report Type: 
  Country: None (occurrence: None)
  Receive Date: 20050602
  Receipt Date: 20050419
  Transmission Date: 20051028
  Serious: No
  Sender: FDA-Public Use
  Company Number: USA050496036

PATIENT
  Age: 61 Year
  Sex: Female
  Weight: 68 kg

DRUGS (5)
  1. CYMBALTA [Suspect]
     Indication: DEPRESSION
     Dosage: 60 MG DAY
     Dates: start: 20050408
  2. EFFEXOR [Concomitant]
  3. CELEBREX [Concomitant]
  4. VITAMINS [Concomitant]
  5. CHONDROITIN [Concomitant]

REACTIONS (2)
  - PRURITUS [None]
  - URTICARIA [None]
